FAERS Safety Report 7483414-5 (Version None)
Quarter: 2011Q2

REPORT INFORMATION
  Report Type: 
  Country: None (occurrence: None)
  Receive Date: 20110512
  Receipt Date: 20110512
  Transmission Date: 20111010
  Serious: Yes (Disabling)
  Sender: FDA-Public Use
  Company Number: None

PATIENT
  Age: 73 Year
  Sex: Female
  Weight: 67.1324 kg

DRUGS (5)
  1. ZOCOR [Concomitant]
  2. FENOFIBRATE [Suspect]
     Indication: BLOOD CHOLESTEROL INCREASED
     Dosage: 54 MG QD AT HS PO
     Route: 048
     Dates: start: 20101018, end: 20101028
  3. FENOFIBRATE [Suspect]
     Indication: BLOOD CHOLESTEROL INCREASED
     Dosage: 54 MG QD AT HS PO
     Route: 048
     Dates: start: 20110210, end: 20110222
  4. LIPITOR [Concomitant]
  5. CRESTOR [Concomitant]

REACTIONS (1)
  - VERTIGO [None]
